FAERS Safety Report 5914639-5 (Version None)
Quarter: 2008Q4

REPORT INFORMATION
  Report Type: 
  Country: None (occurrence: None)
  Receive Date: 20081008
  Receipt Date: 20080924
  Transmission Date: 20090506
  Serious: Yes (Hospitalization)
  Sender: FDA-Public Use
  Company Number: 235766K07USA

PATIENT
  Age: 32 Year
  Sex: Female
  Weight: 70 kg

DRUGS (5)
  1. REBIF [Suspect]
     Indication: MULTIPLE SCLEROSIS
     Dosage: 44 MCG, 3 IN 1 WEEKS, SUBCUTANEOUS
     Route: 058
     Dates: start: 20070213, end: 20070601
  2. ZANAFLEX [Concomitant]
  3. DARVOCET [Concomitant]
  4. ORAL CONTRACEPTIVES (ORAL CONTRACEPTIVES NOS) [Concomitant]
  5. VASOTEC [Concomitant]

REACTIONS (3)
  - ALOPECIA [None]
  - FOCAL SEGMENTAL GLOMERULOSCLEROSIS [None]
  - RENAL FAILURE CHRONIC [None]
